FAERS Safety Report 4450770-1 (Version None)
Quarter: 2004Q3

REPORT INFORMATION
  Report Type: 
  Country: None (occurrence: None)
  Receive Date: 20040916
  Receipt Date: 20040907
  Transmission Date: 20050211
  Serious: Yes (Other)
  Sender: FDA-Public Use
  Company Number: FR-JNJFOC-20040902078

PATIENT
  Age: 52 Year
  Sex: Female

DRUGS (4)
  1. CAELYX [Suspect]
     Route: 042
  2. CAELYX [Suspect]
     Indication: OVARIAN CANCER METASTATIC
     Route: 042
  3. ENDOXAN [Suspect]
  4. ENDOXAN [Suspect]
     Indication: OVARIAN CANCER METASTATIC

REACTIONS (2)
  - FOLLICULITIS [None]
  - NECROSIS [None]
